FAERS Safety Report 14651863 (Version 1)
Quarter: 2018Q1

REPORT INFORMATION
  Report Type: Spontaneous
  Country: NL (occurrence: NL)
  Receive Date: 20180317
  Receipt Date: 20180317
  Transmission Date: 20180509
  Serious: Yes (Hospitalization, Other)
  Sender: FDA-Public Use
  Company Number: NL-AUROBINDO-AUR-APL-2018-014817

PATIENT
  Age: 47 Year
  Sex: Male

DRUGS (27)
  1. CASPOFUNGIN ACETATE. [Suspect]
     Active Substance: CASPOFUNGIN ACETATE
     Dosage: UNK ()
  2. IMIPENEM [Concomitant]
     Active Substance: IMIPENEM
     Indication: PYREXIA
     Dosage: UNK
     Route: 065
  3. RITUXIMAB. [Concomitant]
     Active Substance: RITUXIMAB
     Dosage: UNK ()
  4. CYCLOPHOSPHAMIDE. [Concomitant]
     Active Substance: CYCLOPHOSPHAMIDE
     Dosage: UNK ()
  5. VORICONAZOLE. [Suspect]
     Active Substance: VORICONAZOLE
     Indication: SYSTEMIC CANDIDA
     Dosage: UNK ()
  6. IMIPENEM [Concomitant]
     Active Substance: IMIPENEM
     Dosage: UNK ()
  7. ANIDULAFUNGIN [Suspect]
     Active Substance: ANIDULAFUNGIN
     Dosage: 100 MG, DAILY
  8. DOXORUBICIN [Concomitant]
     Active Substance: DOXORUBICIN
     Dosage: UNK ()
  9. FLUCONAZOLE. [Suspect]
     Active Substance: FLUCONAZOLE
     Indication: SPLENIC CANDIDIASIS
     Dosage: 1200 MILLIGRAM, ONCE A DAY, 600 MG, TWICE DAILY
     Route: 065
  10. AMPHOTERICIN B. [Concomitant]
     Active Substance: AMPHOTERICIN B
     Indication: SPLENIC CANDIDIASIS
     Dosage: UNK ()
  11. CASPOFUNGIN [Concomitant]
     Active Substance: CASPOFUNGIN
     Indication: SPLENIC CANDIDIASIS
     Dosage: UNK ()
  12. FLUCONAZOLE. [Suspect]
     Active Substance: FLUCONAZOLE
     Dosage: 800 MILLIGRAM, DAILY
     Route: 065
  13. FLUCONAZOLE. [Suspect]
     Active Substance: FLUCONAZOLE
     Dosage: 800 MG, UNK
  14. FLUCONAZOLE. [Suspect]
     Active Substance: FLUCONAZOLE
     Dosage: 800 MG, TWICE DAILY
  15. VORICONAZOLE. [Suspect]
     Active Substance: VORICONAZOLE
     Indication: SYSTEMIC CANDIDA
     Dosage: UNK
     Route: 065
  16. CASPOFUNGIN ACETATE. [Suspect]
     Active Substance: CASPOFUNGIN ACETATE
     Indication: SPLENIC CANDIDIASIS
     Dosage: UNK
     Route: 065
  17. AMPHOTERICIN B. [Suspect]
     Active Substance: AMPHOTERICIN B
     Indication: SPLENIC CANDIDIASIS
     Dosage: UNK
     Route: 065
  18. CYTARABINE. [Concomitant]
     Active Substance: CYTARABINE
     Dosage: ()
  19. FLUCONAZOLE. [Suspect]
     Active Substance: FLUCONAZOLE
     Indication: SYSTEMIC CANDIDA
     Dosage: 1600 MILLIGRAM, ONCE A DAY, 800 MG, BID
  20. FLUCONAZOLE. [Suspect]
     Active Substance: FLUCONAZOLE
     Dosage: 800 MG, DAILY
  21. AMPHOTERICIN B. [Suspect]
     Active Substance: AMPHOTERICIN B
     Dosage: UNK ()
  22. IMIPENEM [Concomitant]
     Active Substance: IMIPENEM
     Dosage: UNK ()
  23. FLUCONAZOLE. [Suspect]
     Active Substance: FLUCONAZOLE
     Dosage: 600 MG, BID
  24. FLUCONAZOLE. [Suspect]
     Active Substance: FLUCONAZOLE
     Dosage: 600 MG, TWICE DAILY
  25. PREDNISONE. [Concomitant]
     Active Substance: PREDNISONE
     Dosage: UNK ()
  26. VINCRISTINE [Concomitant]
     Active Substance: VINCRISTINE
     Dosage: UNK ()
  27. ANIDULAFUNGIN [Suspect]
     Active Substance: ANIDULAFUNGIN
     Indication: SYSTEMIC CANDIDA
     Dosage: 100 MG, DAILY
     Route: 065

REACTIONS (5)
  - Incorrect dosage administered [Unknown]
  - Product use in unapproved indication [Unknown]
  - Drug ineffective [Unknown]
  - Product prescribing issue [Unknown]
  - Inappropriate schedule of drug administration [Unknown]
